FAERS Safety Report 10058002 (Version 1)
Quarter: 2014Q2

REPORT INFORMATION
  Report Type: Spontaneous
  Country: US (occurrence: None)
  Receive Date: 20140403
  Receipt Date: 20140403
  Transmission Date: 20141212
  Serious: Yes (Disabling, Other)
  Sender: FDA-Public Use
  Company Number: None

PATIENT
  Age: 77 Year
  Sex: Female
  Weight: 63.5 kg

DRUGS (8)
  1. METRONIDAZOLE [Suspect]
     Indication: GASTROINTESTINAL INFECTION
     Dosage: 500 MG, 3 PILLS DAILY, BY MOUTH
     Route: 048
     Dates: start: 20140128, end: 20140207
  2. OMEGA GENICS (EPA-DHA 720) [Concomitant]
  3. OSTEOSHERTH [Concomitant]
  4. D3 CAP. [Concomitant]
  5. ASPIRIN-81MG [Concomitant]
  6. COQ10-100 MG [Concomitant]
  7. LOSARTAN POTASSIUM (25 MG) [Concomitant]
  8. HYDROCHLOROGTHIAZIDE (12 1/2 MG) [Concomitant]

REACTIONS (4)
  - Faecal incontinence [None]
  - Abnormal faeces [None]
  - Abdominal distension [None]
  - Lymphadenopathy [None]
